FAERS Safety Report 5460421-5 (Version None)
Quarter: 2007Q3

REPORT INFORMATION
  Report Type: 
  Country: None (occurrence: None)
  Receive Date: 20070919
  Receipt Date: 20070622
  Transmission Date: 20080115
  Serious: Yes (Other)
  Sender: FDA-Public Use
  Company Number: US-ASTRAZENECA-2007UW15020

PATIENT
  Age: 40 Year
  Sex: Female

DRUGS (5)
  1. SEROQUEL [Suspect]
     Indication: BIPOLAR DISORDER
     Route: 048
  2. SEROQUEL [Suspect]
     Route: 048
  3. EFFEXOR XR [Concomitant]
  4. DESYREL [Concomitant]
  5. XANAX [Concomitant]

REACTIONS (3)
  - PANCREATITIS [None]
  - THYROID DISORDER [None]
  - WEIGHT INCREASED [None]
